FAERS Safety Report 4650068-2 (Version None)
Quarter: 2005Q2

REPORT INFORMATION
  Report Type: 
  Country: None (occurrence: None)
  Receive Date: 20050428
  Receipt Date: 20050418
  Transmission Date: 20051028
  Serious: Yes (Hospitalization)
  Sender: FDA-Public Use
  Company Number: S05-GER-01552-01

PATIENT
  Sex: Female

DRUGS (1)
  1. CIPRALEX (ESCITALOPRAM) [Suspect]
     Dates: end: 20050414

REACTIONS (2)
  - ELECTROCARDIOGRAM QT CORRECTED INTERVAL PROLONGED [None]
  - SYNCOPE [None]
